FAERS Safety Report 26154228 (Version 1)
Quarter: 2025Q4

REPORT INFORMATION
  Report Type: Spontaneous
  Country: AU (occurrence: AU)
  Receive Date: 20251215
  Receipt Date: 20251215
  Transmission Date: 20260117
  Serious: Yes (Other)
  Sender: ACCORD
  Company Number: None

PATIENT
  Age: 66 Year
  Sex: Male

DRUGS (1)
  1. METHOTREXATE [Suspect]
     Active Substance: METHOTREXATE
     Indication: Product used for unknown indication

REACTIONS (7)
  - Cardiac disorder [Unknown]
  - Inappropriate schedule of product administration [Unknown]
  - Multiple organ dysfunction syndrome [Unknown]
  - Overdose [Unknown]
  - Product prescribing issue [Unknown]
  - Toxicity to various agents [Unknown]
  - Vasculitis [Unknown]
